FAERS Safety Report 19744520 (Version 1)
Quarter: 2021Q3

REPORT INFORMATION
  Report Type: Spontaneous
  Country: US (occurrence: US)
  Receive Date: 20210823
  Receipt Date: 20210823
  Transmission Date: 20211014
  Serious: Yes (Hospitalization)
  Sender: FDA-Public Use
  Company Number: None

PATIENT
  Sex: Female

DRUGS (3)
  1. SIMVASTATIN 20MG TABLET [Concomitant]
     Active Substance: SIMVASTATIN
  2. HUMIRA [Suspect]
     Active Substance: ADALIMUMAB
     Indication: CROHN^S DISEASE
     Dosage: ?          OTHER FREQUENCY:EVERY OTHER WEEK;?
     Route: 058
     Dates: start: 20210414
  3. MESALAMINE 1.2GM TABLET [Concomitant]

REACTIONS (2)
  - Nausea [None]
  - Abdominal pain [None]
